FAERS Safety Report 8340420-6 (Version None)
Quarter: 2012Q2

REPORT INFORMATION
  Report Type: 
  Country: None (occurrence: None)
  Receive Date: 20120507
  Receipt Date: 20120507
  Transmission Date: 20120825
  Serious: Yes (Other)
  Sender: FDA-Public Use
  Company Number: None

PATIENT
  Age: 32 Year
  Sex: Male
  Weight: 67.131 kg

DRUGS (1)
  1. RIFAMPIN [Suspect]
     Indication: LATENT TUBERCULOSIS
     Dosage: |DOSAGETEXT: 600 MG||STRENGTH: 300 MG||FREQ: 1||ROUTE: ORAL|
     Route: 048
     Dates: start: 20100101, end: 20100501

REACTIONS (6)
  - MENTAL IMPAIRMENT [None]
  - DISTURBANCE IN ATTENTION [None]
  - FEELING ABNORMAL [None]
  - MOOD SWINGS [None]
  - THINKING ABNORMAL [None]
  - IMPAIRED WORK ABILITY [None]
